FAERS Safety Report 7543114-X (Version None)
Quarter: 2011Q2

REPORT INFORMATION
  Report Type: 
  Country: None (occurrence: None)
  Receive Date: 20110613
  Receipt Date: 20110609
  Transmission Date: 20111010
  Serious: Yes (Life-Threatening, Other)
  Sender: FDA-Public Use
  Company Number: PHHY2010JP83828

PATIENT
  Sex: Male
  Weight: 24 kg

DRUGS (6)
  1. MEDROL [Suspect]
     Indication: IMMUNOSUPPRESSION
     Dosage: 4 MG, UNK
     Route: 048
     Dates: start: 20060829
  2. NEORAL [Suspect]
     Dosage: 30 MG DAILY
     Route: 042
  3. URINORM [Concomitant]
     Indication: BLOOD URIC ACID DECREASED
     Dosage: 25 MG, UNK
     Route: 048
     Dates: start: 20090627
  4. NEORAL [Suspect]
     Indication: RENAL TRANSPLANT
     Dosage: 140 MG, BID
     Route: 048
     Dates: start: 20080826, end: 20090618
  5. NEO-LOTAN [Concomitant]
     Indication: HYPERTENSION
     Dosage: 7.5 MG, UNK
     Route: 048
     Dates: start: 20090627
  6. UNASYN [Concomitant]
     Indication: PROPHYLAXIS URINARY TRACT INFECTION
     Dosage: 100 MG, UNK
     Route: 048
     Dates: start: 20090627

REACTIONS (7)
  - PYREXIA [None]
  - DYSURIA [None]
  - VOMITING [None]
  - URINARY TRACT INFECTION [None]
  - TACHYCARDIA [None]
  - BLOOD PRESSURE DECREASED [None]
  - DIARRHOEA [None]
